FAERS Safety Report 7162029-2 (Version None)
Quarter: 2010Q4

REPORT INFORMATION
  Report Type: 
  Country: None (occurrence: None)
  Receive Date: 20101215
  Receipt Date: 20100921
  Transmission Date: 20110411
  Serious: Yes (Other)
  Sender: FDA-Public Use
  Company Number: US-PFIZER INC-2010042521

PATIENT
  Sex: Male
  Weight: 97.506 kg

DRUGS (10)
  1. LYRICA [Suspect]
     Indication: DIABETIC NEUROPATHY
     Dosage: 50 MG, 1X/DAY
     Route: 048
     Dates: start: 20100330, end: 20100716
  2. LYRICA [Suspect]
     Indication: INTERVERTEBRAL DISC PROTRUSION
     Dosage: 100 MG, 3X/DAY
     Route: 048
     Dates: start: 20100101
  3. TIAZAC [Concomitant]
     Indication: CARDIAC DISORDER
     Dosage: 240 MG, DAILY
  4. GLUCOVANCE [Concomitant]
     Indication: DIABETES MELLITUS
     Dosage: 2.5/500 MG, DAILY
  5. ACTOS [Concomitant]
     Indication: DIABETES MELLITUS
     Dosage: 30 MG, DAILY
  6. COUMADIN [Concomitant]
     Indication: ANTICOAGULANT THERAPY
     Dosage: UNK
  7. PACERONE [Concomitant]
     Indication: ATRIAL FIBRILLATION
     Dosage: 100 MG, DAILY
  8. BENICAR [Concomitant]
     Indication: CARDIAC DISORDER
     Dosage: 40/25 MG
     Route: 048
  9. GLYBURIDE [Concomitant]
  10. TRAMADOL [Concomitant]

REACTIONS (6)
  - COGNITIVE DISORDER [None]
  - DIZZINESS [None]
  - DYSSTASIA [None]
  - LETHARGY [None]
  - MOBILITY DECREASED [None]
  - SEDATION [None]
